FAERS Safety Report 15722089 (Version 1)
Quarter: 2018Q4

REPORT INFORMATION
  Report Type: Spontaneous
  Country: US (occurrence: US)
  Receive Date: 20181213
  Receipt Date: 20181213
  Transmission Date: 20190205
  Serious: Yes (Hospitalization)
  Sender: FDA-Public Use
  Company Number: None

PATIENT
  Sex: Female

DRUGS (14)
  1. BUSPIRONE [Concomitant]
     Active Substance: BUSPIRONE HYDROCHLORIDE
  2. PLAQUENIL [Concomitant]
     Active Substance: HYDROXYCHLOROQUINE SULFATE
  3. TEGRETOL XR [Concomitant]
     Active Substance: CARBAMAZEPINE
  4. ZOFRAN [Concomitant]
     Active Substance: ONDANSETRON HYDROCHLORIDE
  5. FORTEO [Suspect]
     Active Substance: TERIPARATIDE
     Indication: SENILE OSTEOPOROSIS
     Route: 058
     Dates: start: 20180322
  6. POTASSIUM [Concomitant]
     Active Substance: POTASSIUM
  7. SYNTHROID [Concomitant]
     Active Substance: LEVOTHYROXINE SODIUM
  8. PEPCID [Concomitant]
     Active Substance: FAMOTIDINE
  9. FEVERFEW [Concomitant]
     Active Substance: FEVERFEW
  10. PROTONIX [Concomitant]
     Active Substance: PANTOPRAZOLE SODIUM
  11. REGLAN [Concomitant]
     Active Substance: METOCLOPRAMIDE HYDROCHLORIDE
  12. ZYRTEC [Concomitant]
     Active Substance: CETIRIZINE HYDROCHLORIDE
  13. SILDENAFIL. [Concomitant]
     Active Substance: SILDENAFIL
  14. ORPHENADRINE [Concomitant]
     Active Substance: ORPHENADRINE

REACTIONS (3)
  - Product dose omission [None]
  - Treatment noncompliance [None]
  - Hospitalisation [None]
